FAERS Safety Report 11430100 (Version 2)
Quarter: 2015Q3

REPORT INFORMATION
  Report Type: Spontaneous
  Country: US (occurrence: US)
  Receive Date: 20150828
  Receipt Date: 20150904
  Transmission Date: 20151125
  Serious: No
  Sender: FDA-Public Use
  Company Number: PHEH2014US023657

PATIENT
  Age: 88 Year
  Sex: Female

DRUGS (21)
  1. TEKTURNA [Suspect]
     Active Substance: ALISKIREN HEMIFUMARATE
     Dosage: 150 MG, 1/2 T
     Route: 065
  2. VITAMIN D [Concomitant]
     Active Substance: CHOLECALCIFEROL
     Indication: PRODUCT USED FOR UNKNOWN INDICATION
     Dosage: 400 MG, TID
     Route: 048
  3. CIMETIDINE [Concomitant]
     Active Substance: CIMETIDINE
     Indication: PRODUCT USED FOR UNKNOWN INDICATION
     Dosage: 300 MG, QID
     Route: 065
  4. ASA [Concomitant]
     Active Substance: ASPIRIN
     Indication: PRODUCT USED FOR UNKNOWN INDICATION
     Dosage: 81 MG, QD
     Route: 048
  5. VIACTIV [Concomitant]
     Active Substance: CALCIUM\VITAMIN D\VITAMIN K5
     Indication: PRODUCT USED FOR UNKNOWN INDICATION
     Dosage: QD
     Route: 048
  6. TEKTURNA [Suspect]
     Active Substance: ALISKIREN HEMIFUMARATE
     Indication: HYPERTENSION
     Dosage: 0.5 DF, (1/2 T) QD
     Route: 048
  7. CENTRUM SILVER [Concomitant]
     Active Substance: VITAMINS
     Indication: PRODUCT USED FOR UNKNOWN INDICATION
     Dosage: UNK OT, QD
     Route: 048
  8. VITAMIN D [Concomitant]
     Active Substance: CHOLECALCIFEROL
     Indication: PRODUCT USED FOR UNKNOWN INDICATION
     Dosage: 400 IU, UNK
     Route: 065
  9. RECLAST [Suspect]
     Active Substance: ZOLEDRONIC ACID
     Indication: OSTEOPOROSIS
     Dosage: PER YEAR
     Route: 042
  10. TAGAMET [Suspect]
     Active Substance: CIMETIDINE
     Indication: PRURITUS
     Dosage: 1 DF, QD
     Route: 048
  11. ACCUVIT [Concomitant]
     Active Substance: VITAMINS
     Indication: PRODUCT USED FOR UNKNOWN INDICATION
     Dosage: UNK
     Route: 065
  12. ARIMIDEX [Suspect]
     Active Substance: ANASTROZOLE
     Indication: PRODUCT USED FOR UNKNOWN INDICATION
     Dosage: UNK
     Route: 065
  13. ASPIRIN. [Concomitant]
     Active Substance: ASPIRIN
     Indication: PRODUCT USED FOR UNKNOWN INDICATION
     Dosage: UNK
     Route: 065
  14. CENTRUM SILVER [Concomitant]
     Active Substance: VITAMINS
     Indication: PRODUCT USED FOR UNKNOWN INDICATION
     Dosage: UNK
     Route: 065
  15. RECLAST [Suspect]
     Active Substance: ZOLEDRONIC ACID
     Indication: OSTEITIS DEFORMANS
     Dosage: PER YEAR
     Route: 042
  16. RECLAST [Suspect]
     Active Substance: ZOLEDRONIC ACID
     Indication: BLOOD CALCIUM DECREASED
     Dosage: PER YEAR
     Route: 042
  17. RECLAST [Suspect]
     Active Substance: ZOLEDRONIC ACID
     Dosage: 4TH INFUSION, PER YEAR
     Route: 042
     Dates: start: 201309
  18. OCUVIT [Concomitant]
     Indication: PRODUCT USED FOR UNKNOWN INDICATION
     Dosage: UNK OT, QD
     Route: 048
  19. FOSAMAX [Concomitant]
     Active Substance: ALENDRONATE SODIUM
     Indication: PRODUCT USED FOR UNKNOWN INDICATION
     Dosage: UNK
     Route: 065
  20. VIACTIV                            /01483701/ [Concomitant]
     Indication: PRODUCT USED FOR UNKNOWN INDICATION
     Dosage: UNK
     Route: 065
  21. OMEGA                                   /ARG/ [Concomitant]
     Indication: PRODUCT USED FOR UNKNOWN INDICATION
     Dosage: UNK
     Route: 065

REACTIONS (9)
  - Platelet count increased [Unknown]
  - Herpes zoster [Unknown]
  - Skin sensitisation [Unknown]
  - Janus kinase 2 mutation [Unknown]
  - Pruritus [Unknown]
  - Discomfort [Unknown]
  - Pain of skin [Unknown]
  - Nausea [Unknown]
  - Thrombocytosis [Unknown]

NARRATIVE: CASE EVENT DATE: 201309
